FAERS Safety Report 16756363 (Version 2)
Quarter: 2021Q1

REPORT INFORMATION
  Report Type: Other
  Country: US (occurrence: US)
  Receive Date: 20190829
  Receipt Date: 20210310
  Transmission Date: 20210419
  Serious: Yes (Other)
  Sender: FDA-Public Use
  Company Number: US-ROCHE-2387362

PATIENT
  Sex: Female

DRUGS (9)
  1. FROVATRIPTAN SUCCINATE. [Concomitant]
     Active Substance: FROVATRIPTAN SUCCINATE
     Dosage: TAKE  1TAB AT THE ONSET OF HEADACHE, MAY REPEAT EVERY 2 HRS AS NEEDED; MAXIMUM 3 TABLETS  IN 24 HRS
     Route: 048
     Dates: start: 20180223
  2. QUETIAPINE FUMARATE. [Concomitant]
     Active Substance: QUETIAPINE FUMARATE
     Dosage: TAKE 1 TABLET AT BED TIME
     Route: 048
     Dates: start: 20181212, end: 20190210
  3. RIZATRIPTAN BENZOATE. [Concomitant]
     Active Substance: RIZATRIPTAN BENZOATE
     Dosage: TAKE ONE TABLET AT THE ONSET OF HEADACHE, MAY REPEAT EVERY 2 HRS  AS NEEDED, MAXIMUM 3 TABLETS IN 24
     Route: 048
     Dates: start: 20181212, end: 20190411
  4. LYRICA [Concomitant]
     Active Substance: PREGABALIN
     Dosage: TAKE  1 CAPSULE  TWICE DAILY;
     Route: 048
     Dates: start: 20180726, end: 20190403
  5. VIMOVO [Concomitant]
     Active Substance: ESOMEPRAZOLE MAGNESIUM\NAPROXEN
     Dosage: 500?20 MG , TAKE 1 TABLET TWICE DALLY
     Route: 048
     Dates: start: 20180515
  6. OCREVUS [Suspect]
     Active Substance: OCRELIZUMAB
     Indication: MULTIPLE SCLEROSIS
     Route: 065
  7. AIMOVIG [Concomitant]
     Active Substance: ERENUMAB-AOOE
     Dosage: DIRECTED TWICE  SUBCUTANEOUS INJECTION
     Route: 058
     Dates: start: 20180726, end: 20190411
  8. CAMBIA [Concomitant]
     Active Substance: DICLOFENAC POTASSIUM
     Route: 048
     Dates: start: 20180823, end: 20181221
  9. TRAMADOL HCL [Concomitant]
     Active Substance: TRAMADOL HYDROCHLORIDE
     Dosage: TAKE 1 TABLET  3 TIME DAILY AS NEEDED
     Route: 048
     Dates: start: 20181030, end: 20190706

REACTIONS (9)
  - Muscle tightness [Unknown]
  - Migraine [Unknown]
  - Sepsis [Unknown]
  - Phonophobia [Unknown]
  - Headache [Unknown]
  - Ear pain [Unknown]
  - Photophobia [Unknown]
  - Paraesthesia [Unknown]
  - Nausea [Unknown]
